FAERS Safety Report 15858626 (Version 1)
Quarter: 2019Q1

REPORT INFORMATION
  Report Type: Spontaneous
  Country: US (occurrence: US)
  Receive Date: 20190123
  Receipt Date: 20190123
  Transmission Date: 20190417
  Serious: Yes (Hospitalization)
  Sender: FDA-Public Use
  Company Number: US-ELI_LILLY_AND_COMPANY-US201901009594

PATIENT
  Age: 63 Year
  Sex: Male

DRUGS (5)
  1. ACE INHIBITORS [Concomitant]
     Active Substance: UNSPECIFIED INGREDIENT
  2. HYDROMORPHONE [Concomitant]
     Active Substance: HYDROMORPHONE
  3. LAMICTAL [Concomitant]
     Active Substance: LAMOTRIGINE
  4. EMGALITY [Suspect]
     Active Substance: GALCANEZUMAB-GNLM
     Indication: PRODUCT USED FOR UNKNOWN INDICATION
     Dosage: UNK, UNKNOWN
     Route: 065
  5. ASPIRIN [ACETYLSALICYLIC ACID] [Concomitant]
     Active Substance: ASPIRIN

REACTIONS (1)
  - Myocardial infarction [Unknown]
